FAERS Safety Report 16200855 (Version 1)
Quarter: 2019Q2

REPORT INFORMATION
  Report Type: Spontaneous
  Country: US (occurrence: US)
  Receive Date: 20190416
  Receipt Date: 20190416
  Transmission Date: 20190711
  Serious: Yes (Other)
  Sender: FDA-Public Use
  Company Number: US-BION-001035

PATIENT
  Age: 43 Year
  Sex: Female
  Weight: 52.16 kg

DRUGS (12)
  1. XOPENEX [Concomitant]
     Active Substance: LEVALBUTEROL HYDROCHLORIDE
  2. ALEVE [Suspect]
     Active Substance: NAPROXEN SODIUM
     Indication: FIBROMYALGIA
     Dosage: 2 DF, ONCE,
     Route: 048
     Dates: start: 20130109, end: 20130109
  3. ASCORBIC ACID. [Concomitant]
     Active Substance: ASCORBIC ACID
  4. CETIRIZINE/CETIRIZINE HYDROCHLORIDE [Concomitant]
  5. VITAMINS NOS [Concomitant]
     Active Substance: VITAMINS
  6. FISH OIL [Concomitant]
     Active Substance: FISH OIL
  7. PROBIOTIC [Concomitant]
     Active Substance: PROBIOTICS NOS
  8. PROVENTIL [Concomitant]
     Active Substance: ALBUTEROL
  9. CALCIUM [Concomitant]
     Active Substance: CALCIUM
  10. TYLENOL [Concomitant]
     Active Substance: ACETAMINOPHEN
  11. ERGOCALCIFEROL. [Concomitant]
     Active Substance: ERGOCALCIFEROL
  12. ACIPHEX [Concomitant]
     Active Substance: RABEPRAZOLE SODIUM

REACTIONS (8)
  - Paraesthesia oral [Not Recovered/Not Resolved]
  - Abdominal pain upper [Recovered/Resolved]
  - Product use in unapproved indication [Not Recovered/Not Resolved]
  - Dyspepsia [Not Recovered/Not Resolved]
  - Burning sensation [Recovering/Resolving]
  - Rash [Recovering/Resolving]
  - Eye pruritus [Recovered/Resolved]
  - Swelling face [Recovering/Resolving]

NARRATIVE: CASE EVENT DATE: 20130109
